FAERS Safety Report 14577054 (Version 1)
Quarter: 2018Q1

REPORT INFORMATION
  Report Type: Spontaneous
  Country: US (occurrence: US)
  Receive Date: 20180227
  Receipt Date: 20180227
  Transmission Date: 20180509
  Serious: No
  Sender: FDA-Public Use
  Company Number: US-BAYER-2018-038744

PATIENT
  Age: 35 Year
  Sex: Male
  Weight: 84 kg

DRUGS (2)
  1. CLARITIN [Suspect]
     Active Substance: LORATADINE
     Indication: NASOPHARYNGITIS
  2. CLARITIN [Suspect]
     Active Substance: LORATADINE
     Indication: HYPERSENSITIVITY
     Dosage: 1 DF, QD
     Route: 048
     Dates: start: 20180218, end: 20180222

REACTIONS (4)
  - Diarrhoea [Recovered/Resolved]
  - Discomfort [Recovered/Resolved]
  - Product lot number issue [None]
  - Anxiety [Recovered/Resolved]

NARRATIVE: CASE EVENT DATE: 20180220
